FAERS Safety Report 8894196 (Version 2)
Quarter: 2012Q4

REPORT INFORMATION
  Report Type: Report from Study
  Country: DE (occurrence: DE)
  Receive Date: 20121108
  Receipt Date: 20121126
  Transmission Date: 20130627
  Serious: Yes (Hospitalization)
  Sender: FDA-Public Use
  Company Number: DE-ABBOTT-12P-062-1002548-00

PATIENT
  Age: 71 Year
  Sex: Female
  Weight: 72 kg

DRUGS (8)
  1. HUMIRA [Suspect]
     Indication: RHEUMATOID ARTHRITIS
     Route: 058
     Dates: start: 20120525, end: 201208
  2. HUMIRA [Suspect]
     Dates: end: 20120920
  3. PREDNISOLONE [Concomitant]
     Indication: PRODUCT USED FOR UNKNOWN INDICATION
     Dates: start: 201205
  4. PREDNISOLONE [Concomitant]
     Dates: start: 201205
  5. PHENPROCOUMON [Concomitant]
     Indication: PRODUCT USED FOR UNKNOWN INDICATION
     Dates: start: 2008
  6. L THYROXINE [Concomitant]
     Indication: PRODUCT USED FOR UNKNOWN INDICATION
  7. PANTOPRAZOLE [Concomitant]
     Indication: PRODUCT USED FOR UNKNOWN INDICATION
  8. OXYGEN [Concomitant]
     Indication: PRODUCT USED FOR UNKNOWN INDICATION
     Dosage: 2 l per minute; 16 hours per day
     Route: 055

REACTIONS (7)
  - Pulmonary hypertension [Unknown]
  - Cardiac failure [Recovered/Resolved]
  - Chest pain [Recovering/Resolving]
  - Dyspnoea [Unknown]
  - Dyspnoea exertional [Unknown]
  - Drug intolerance [Unknown]
  - Cardiac failure [Unknown]
